FAERS Safety Report 8494830 (Version 5)
Quarter: 2013Q2

REPORT INFORMATION
  Report Type: Spontaneous
  Country: US (occurrence: US)
  Receive Date: 20120405
  Receipt Date: 20130606
  Transmission Date: 20140414
  Serious: Yes (Hospitalization)
  Sender: FDA-Public Use
  Company Number: US-BIOGENIDEC-2012BI011209

PATIENT
  Age: 36 Year
  Sex: Male

DRUGS (17)
  1. TYSABRI [Suspect]
     Indication: MULTIPLE SCLEROSIS
     Route: 042
     Dates: start: 20110614, end: 20130408
  2. POTASSIUM CHLORIDE [Concomitant]
     Route: 048
  3. CITALOPRAM [Concomitant]
     Route: 048
  4. CYMBALTA [Concomitant]
     Route: 048
  5. CYCLOBENZAPRINE [Concomitant]
     Route: 048
  6. AZATHIOPRINE [Concomitant]
  7. TRAZODONE [Concomitant]
     Route: 048
  8. NORCO [Concomitant]
     Route: 048
  9. NEURONTIN [Concomitant]
     Route: 048
  10. VITAMIN D2 [Concomitant]
     Route: 048
  11. ZONEGRAN [Concomitant]
     Route: 048
  12. DILANTIN [Concomitant]
     Route: 048
  13. ESCITALOPRAM OXALATE [Concomitant]
     Route: 048
  14. COLACE [Concomitant]
     Route: 048
  15. AMBIEN [Concomitant]
  16. PROTONIX [Concomitant]
     Route: 048
  17. ALBUTEROL SULFATE [Concomitant]

REACTIONS (10)
  - Convulsion [Unknown]
  - Drug specific antibody present [Unknown]
  - Tremor [Unknown]
  - Confusional state [Unknown]
  - Concussion [Recovered/Resolved]
  - Back injury [Recovered/Resolved]
  - Speech disorder [Not Recovered/Not Resolved]
  - Alcohol poisoning [Recovered/Resolved]
  - Fall [Recovered/Resolved]
  - Head injury [Recovered/Resolved]
